FAERS Safety Report 8162805-3 (Version None)
Quarter: 2012Q1

REPORT INFORMATION
  Report Type: 
  Country: None (occurrence: None)
  Receive Date: 20120221
  Receipt Date: 20120203
  Transmission Date: 20120608
  Serious: Yes (Other)
  Sender: FDA-Public Use
  Company Number: JPI-P-017395

PATIENT
  Age: 38 Year
  Sex: Female

DRUGS (5)
  1. XYREM [Suspect]
     Indication: CATAPLEXY
     Dosage: SEE IMAGE
     Route: 048
     Dates: start: 20120114
  2. XYREM [Suspect]
     Indication: CATAPLEXY
     Dosage: SEE IMAGE
     Route: 048
     Dates: start: 20110831
  3. XYREM [Suspect]
     Indication: CATAPLEXY
     Dosage: SEE IMAGE
     Route: 048
     Dates: start: 20110901
  4. XYREM [Suspect]
     Indication: CATAPLEXY
     Dosage: SEE IMAGE
     Route: 048
     Dates: start: 20110714, end: 20110830
  5. IBUPROFEN TABLETS [Concomitant]

REACTIONS (10)
  - INSOMNIA [None]
  - HEART RATE INCREASED [None]
  - HEAD INJURY [None]
  - EYELID OEDEMA [None]
  - SOMNAMBULISM [None]
  - ANXIETY [None]
  - DIZZINESS [None]
  - ROAD TRAFFIC ACCIDENT [None]
  - DRUG INEFFECTIVE [None]
  - CONCUSSION [None]
